FAERS Safety Report 10553431 (Version 2)
Quarter: 2015Q2

REPORT INFORMATION
  Report Type: Spontaneous
  Country: US (occurrence: None)
  Receive Date: 20141020
  Receipt Date: 20150420
  Transmission Date: 20150821
  Serious: Yes (Other)
  Sender: FDA-Public Use
  Company Number: AEGR000520

PATIENT
  Age: 56 Year
  Sex: Male
  Weight: 85.3 kg

DRUGS (8)
  1. UROXATRAL (ALFUZOSIN HYDROCHLORIDE) [Concomitant]
  2. PLAVIX [Concomitant]
     Active Substance: CLOPIDOGREL BISULFATE
  3. LOVAZA [Concomitant]
     Active Substance: OMEGA-3-ACID ETHYL ESTERS
  4. JUXTAPID [Suspect]
     Active Substance: LOMITAPIDE MESYLATE
     Indication: TYPE IIA HYPERLIPIDAEMIA
     Route: 048
     Dates: start: 20140509, end: 20140701
  5. WELCHOL (COLESEVELAM HYDROCHLORIDE) (625 MILLIGRAM, TABLET) (COLESEVELAM HYDROCHLORIDE) [Concomitant]
     Active Substance: COLESEVELAM HYDROCHLORIDE
  6. ASPIRIN. [Concomitant]
     Active Substance: ASPIRIN
  7. CO ENZYME Q10 (UBIDECARENONE) [Concomitant]
  8. NIASPAN (NICOTINIC ACID) [Concomitant]

REACTIONS (6)
  - Weight decreased [None]
  - Low density lipoprotein increased [None]
  - Abdominal pain upper [None]
  - Lipids increased [None]
  - Asthenia [None]
  - Blood cholesterol increased [None]

NARRATIVE: CASE EVENT DATE: 20140510
